FAERS Safety Report 8451119-X (Version None)
Quarter: 2012Q2

REPORT INFORMATION
  Report Type: 
  Country: None (occurrence: None)
  Receive Date: 20120613
  Receipt Date: 20120528
  Transmission Date: 20120825
  Serious: Yes (Hospitalization)
  Sender: FDA-Public Use
  Company Number: B0799339A

PATIENT
  Sex: Male

DRUGS (1)
  1. LAMOTRIGINE [Suspect]
     Indication: PRODUCT USED FOR UNKNOWN INDICATION
     Dosage: UNK/UNK/UNKNOWN
     Dates: start: 20120215

REACTIONS (8)
  - TOXIC EPIDERMAL NECROLYSIS [None]
  - INFLUENZA VIRUS TEST POSITIVE [None]
  - HUMAN HERPESVIRUS 6 INFECTION [None]
  - LEUKOCYTOSIS [None]
  - HEPATIC FUNCTION ABNORMAL [None]
  - MYCOPLASMA TEST POSITIVE [None]
  - STEVENS-JOHNSON SYNDROME [None]
  - EPSTEIN-BARR VIRUS TEST POSITIVE [None]
